FAERS Safety Report 23986095 (Version 1)
Quarter: 2024Q2

REPORT INFORMATION
  Report Type: Report from Study
  Country: CA (occurrence: CA)
  Receive Date: 20240618
  Receipt Date: 20240618
  Transmission Date: 20240715
  Serious: Yes (Other)
  Sender: FDA-Public Use
  Company Number: CA-ABBVIE-5800784

PATIENT
  Age: 72 Year
  Sex: Male
  Weight: 76 kg

DRUGS (2)
  1. SKYRIZI [Suspect]
     Active Substance: RISANKIZUMAB-RZAA
     Indication: Crohn^s disease
     Route: 058
     Dates: start: 20230310
  2. CODEINE [Concomitant]
     Active Substance: CODEINE
     Indication: Crohn^s disease

REACTIONS (6)
  - Intestinal anastomosis complication [Unknown]
  - Social problem [Unknown]
  - Impaired work ability [Unknown]
  - Feeling abnormal [Unknown]
  - Dry eye [Unknown]
  - Gastrointestinal fistula [Unknown]

NARRATIVE: CASE EVENT DATE: 20240101
